FAERS Safety Report 15849745 (Version 2)
Quarter: 2019Q3

REPORT INFORMATION
  Report Type: Spontaneous
  Country: CA (occurrence: CA)
  Receive Date: 20190121
  Receipt Date: 20190816
  Transmission Date: 20191004
  Serious: Yes (Other)
  Sender: FDA-Public Use
  Company Number: CA-MYLANLABS-2019M1004388

PATIENT
  Age: 35 Year
  Sex: Female
  Weight: 59 kg

DRUGS (1)
  1. SYNTHROID [Suspect]
     Active Substance: LEVOTHYROXINE SODIUM
     Indication: HYPOTHYROIDISM
     Dosage: UNK
     Route: 048
     Dates: start: 20181128, end: 20181220

REACTIONS (5)
  - Hyperaesthesia teeth [Recovering/Resolving]
  - Hyperthyroidism [Recovering/Resolving]
  - Dry skin [Recovering/Resolving]
  - Nasal disorder [Recovering/Resolving]
  - Toothache [Recovering/Resolving]

NARRATIVE: CASE EVENT DATE: 20181218
